FAERS Safety Report 6026118-8 (Version None)
Quarter: 2009Q1

REPORT INFORMATION
  Report Type: 
  Country: None (occurrence: None)
  Receive Date: 20090102
  Receipt Date: 20081224
  Transmission Date: 20090719
  Serious: Yes (Hospitalization, Other)
  Sender: FDA-Public Use
  Company Number: JP-ROCHE-602853

PATIENT
  Sex: Male
  Weight: 65 kg

DRUGS (17)
  1. ROCEPHIN [Suspect]
     Indication: MENINGITIS BACTERIAL
     Dosage: ROUTE: INTRAVENOUS (NOT OTHERWISE SPECIFIED).
     Route: 042
     Dates: start: 20080928, end: 20081002
  2. RADICUT [Suspect]
     Indication: CEREBRAL INFARCTION
     Dosage: ROUTE: INTRAVENOUS (NOT OTHERWISE SPECIFIED).
     Route: 042
     Dates: start: 20080928, end: 20081003
  3. ACYCLOVIR [Suspect]
     Indication: ENCEPHALITIS HERPES
     Dosage: DRUG: VICCLOX.
     Route: 041
     Dates: start: 20080928, end: 20080929
  4. CATACLOT [Suspect]
     Indication: CEREBRAL INFARCTION
     Dosage: ROUTE: INTRAVENOUS (NOT OTHERWISE SPECIFIED).
     Route: 042
     Dates: start: 20080929, end: 20081003
  5. GASTER [Concomitant]
     Dosage: ROUTE: INTRAVENOUS (NOT OTHERWISE SPECIFIED).
     Route: 042
     Dates: start: 20080928, end: 20080929
  6. PRIMPERAN TAB [Concomitant]
     Dosage: ROUTE; INTRAVENOUS (NOT OTHERWISE SPECIFIED).
     Route: 042
     Dates: start: 20080928, end: 20080928
  7. VOLTAREN [Concomitant]
     Dosage: FORM: RECTAL SUPPOSITORY.
     Route: 054
     Dates: start: 20080928, end: 20080928
  8. VOLTAREN [Concomitant]
     Route: 054
     Dates: start: 20081001, end: 20081001
  9. LOXONIN [Concomitant]
     Route: 048
     Dates: start: 20080929, end: 20081003
  10. GASTER D [Concomitant]
     Route: 048
     Dates: start: 20080929, end: 20081008
  11. DASEN [Concomitant]
     Route: 048
     Dates: start: 20080929, end: 20081005
  12. ALLELOCK [Concomitant]
     Route: 048
     Dates: start: 20080929, end: 20081002
  13. AMARYL [Concomitant]
     Route: 048
     Dates: start: 20080930, end: 20081008
  14. ATARAX [Concomitant]
     Dates: start: 20081001
  15. MAGMITT [Concomitant]
     Route: 048
     Dates: start: 20081001
  16. ALESION [Concomitant]
     Route: 048
     Dates: start: 20081003
  17. AMLODIN [Concomitant]
     Route: 048

REACTIONS (3)
  - EOSINOPHIL COUNT INCREASED [None]
  - LIVER DISORDER [None]
  - RENAL DISORDER [None]
